FAERS Safety Report 18109294 (Version 2)
Quarter: 2020Q3

REPORT INFORMATION
  Report Type: Spontaneous
  Country: US (occurrence: US)
  Receive Date: 20200804
  Receipt Date: 20200810
  Transmission Date: 20201103
  Serious: Yes (Other)
  Sender: FDA-Public Use
  Company Number: US-GLAXOSMITHKLINE-US2020AMR147776

PATIENT
  Sex: Female

DRUGS (1)
  1. ZEJULA [Suspect]
     Active Substance: NIRAPARIB
     Indication: OVARIAN CANCER
     Dosage: 200 MG, QD
     Route: 048
     Dates: start: 20200723

REACTIONS (5)
  - Haemoglobin decreased [Unknown]
  - Ureteral stent insertion [Unknown]
  - Platelet count decreased [Recovering/Resolving]
  - Ascites [Unknown]
  - Abdominal pain [Unknown]
